FAERS Safety Report 18531452 (Version 4)
Quarter: 2023Q2

REPORT INFORMATION
  Report Type: Spontaneous
  Country: CA (occurrence: CA)
  Receive Date: 20201122
  Receipt Date: 20230519
  Transmission Date: 20230721
  Serious: Yes (Hospitalization, Other)
  Sender: FDA-Public Use
  Company Number: CA-JNJFOC-20201124162

PATIENT
  Age: 44 Year
  Sex: Male

DRUGS (49)
  1. RISPERDAL [Interacting]
     Active Substance: RISPERIDONE
     Indication: Major depression
     Route: 065
  2. RISPERDAL [Interacting]
     Active Substance: RISPERIDONE
     Indication: Depression
  3. HALDOL [Suspect]
     Active Substance: HALOPERIDOL
     Indication: Major depression
     Route: 065
  4. CLOZAPINE [Suspect]
     Active Substance: CLOZAPINE
     Indication: Product used for unknown indication
     Route: 048
  5. CLOZAPINE [Suspect]
     Active Substance: CLOZAPINE
     Route: 048
  6. CLOZAPINE [Suspect]
     Active Substance: CLOZAPINE
     Route: 048
  7. CLOZAPINE [Suspect]
     Active Substance: CLOZAPINE
     Route: 065
  8. CLOZAPINE [Suspect]
     Active Substance: CLOZAPINE
     Route: 065
  9. CLOZAPINE [Suspect]
     Active Substance: CLOZAPINE
     Route: 065
  10. CLOZAPINE [Suspect]
     Active Substance: CLOZAPINE
     Route: 046
  11. CLOZAPINE [Suspect]
     Active Substance: CLOZAPINE
     Route: 066
  12. CLOZAPINE [Suspect]
     Active Substance: CLOZAPINE
     Indication: Major depression
     Route: 048
  13. CLOZAPINE [Suspect]
     Active Substance: CLOZAPINE
     Route: 048
  14. CLOZAPINE [Suspect]
     Active Substance: CLOZAPINE
     Route: 048
  15. CLOZAPINE [Suspect]
     Active Substance: CLOZAPINE
     Route: 048
  16. CLOZAPINE [Suspect]
     Active Substance: CLOZAPINE
     Route: 048
  17. ZYPREXA [Suspect]
     Active Substance: OLANZAPINE
     Indication: Major depression
     Route: 065
  18. QUETIAPINE FUMARATE [Interacting]
     Active Substance: QUETIAPINE FUMARATE
     Indication: Major depression
     Route: 048
  19. QUETIAPINE FUMARATE [Interacting]
     Active Substance: QUETIAPINE FUMARATE
     Indication: Depression
     Route: 048
  20. QUETIAPINE FUMARATE [Interacting]
     Active Substance: QUETIAPINE FUMARATE
     Indication: Bipolar disorder
  21. VENLAFAXINE [Suspect]
     Active Substance: VENLAFAXINE HYDROCHLORIDE
     Indication: Major depression
     Route: 065
  22. VENLAFAXINE [Suspect]
     Active Substance: VENLAFAXINE HYDROCHLORIDE
     Route: 065
  23. ATAZANAVIR SULFATE [Interacting]
     Active Substance: ATAZANAVIR SULFATE
     Indication: HIV infection
     Route: 065
  24. BUPROPION [Interacting]
     Active Substance: BUPROPION
     Indication: Depression
     Route: 065
  25. BUPROPION [Interacting]
     Active Substance: BUPROPION
     Indication: Bipolar disorder
  26. CITALOPRAM HYDROBROMIDE [Interacting]
     Active Substance: CITALOPRAM HYDROBROMIDE
     Indication: Psychotic disorder
     Route: 065
  27. CLONAZEPAM [Interacting]
     Active Substance: CLONAZEPAM
     Indication: Depression
     Route: 048
  28. CLONAZEPAM [Interacting]
     Active Substance: CLONAZEPAM
     Indication: Bipolar disorder
  29. RALTEGRAVIR POTASSIUM [Interacting]
     Active Substance: RALTEGRAVIR POTASSIUM
     Indication: HIV infection
     Route: 048
  30. RALTEGRAVIR POTASSIUM [Interacting]
     Active Substance: RALTEGRAVIR POTASSIUM
     Indication: Depression
     Route: 048
  31. RITONAVIR [Interacting]
     Active Substance: RITONAVIR
     Indication: HIV infection
     Route: 065
  32. RITONAVIR [Interacting]
     Active Substance: RITONAVIR
     Indication: Depression
  33. SUSTIVA [Interacting]
     Active Substance: EFAVIRENZ
     Indication: HIV infection
     Route: 048
  34. SUSTIVA [Interacting]
     Active Substance: EFAVIRENZ
     Indication: Depression
  35. BUPROPION HYDROBROMIDE [Interacting]
     Active Substance: BUPROPION HYDROBROMIDE
     Indication: Depression
     Route: 065
  36. BUPROPION HYDROBROMIDE [Interacting]
     Active Substance: BUPROPION HYDROBROMIDE
     Indication: Bipolar disorder
  37. KALETRA [Interacting]
     Active Substance: LOPINAVIR\RITONAVIR
     Indication: HIV infection
     Route: 065
  38. LAMIVUDINE [Interacting]
     Active Substance: LAMIVUDINE
     Indication: HIV infection
     Route: 065
  39. SERTRALINE HYDROCHLORIDE [Interacting]
     Active Substance: SERTRALINE HYDROCHLORIDE
     Indication: Bipolar disorder
     Route: 065
  40. VALPROIC ACID [Interacting]
     Active Substance: VALPROIC ACID
     Indication: Bipolar disorder
     Route: 065
  41. ZOPICLONE [Interacting]
     Active Substance: ZOPICLONE
     Indication: Bipolar disorder
     Route: 065
  42. ENFUVIRTIDE [Interacting]
     Active Substance: ENFUVIRTIDE
     Indication: Product used for unknown indication
     Route: 065
  43. OTERACIL POTASSIUM [Suspect]
     Active Substance: OTERACIL POTASSIUM
     Indication: Product used for unknown indication
     Route: 065
  44. TEGAFUR [Suspect]
     Active Substance: TEGAFUR
     Indication: Product used for unknown indication
     Route: 065
  45. EMTRIVA [Concomitant]
     Active Substance: EMTRICITABINE
     Indication: Depression
     Route: 065
  46. ENFUVIRTIDE [Concomitant]
     Active Substance: ENFUVIRTIDE
     Indication: Depression
     Route: 065
  47. TENOFOVIR [Concomitant]
     Active Substance: TENOFOVIR
     Indication: Depression
     Route: 065
  48. EMTRICITABINE [Concomitant]
     Active Substance: EMTRICITABINE
     Indication: Depression
     Route: 065
  49. TENOFOVIR DISOPROXIL FUMARATE [Concomitant]
     Active Substance: TENOFOVIR DISOPROXIL FUMARATE
     Indication: Depression

REACTIONS (23)
  - Suicidal ideation [Recovered/Resolved]
  - Depression suicidal [Recovered/Resolved]
  - Psychiatric decompensation [Recovered/Resolved]
  - Psychomotor retardation [Recovered/Resolved]
  - Paranoia [Recovered/Resolved]
  - Psychomotor skills impaired [Recovered/Resolved]
  - Rebound effect [Unknown]
  - Retching [Unknown]
  - Gastric infection [Unknown]
  - Anxiety [Recovered/Resolved]
  - Abdominal pain [Unknown]
  - Psychotic disorder [Recovered/Resolved]
  - Drug interaction [Recovered/Resolved]
  - Constipation [Unknown]
  - Muscle rigidity [Unknown]
  - Pain [Unknown]
  - Salivary hypersecretion [Unknown]
  - Sedation [Unknown]
  - Depression [Recovered/Resolved]
  - Depressive symptom [Recovered/Resolved]
  - Tearfulness [Recovered/Resolved]
  - Product use in unapproved indication [Unknown]
  - Off label use [Unknown]
